FAERS Safety Report 19317686 (Version 1)
Quarter: 2021Q2

REPORT INFORMATION
  Report Type: Spontaneous
  Country: US (occurrence: US)
  Receive Date: 20210528
  Receipt Date: 20210528
  Transmission Date: 20210717
  Serious: No
  Sender: FDA-Public Use
  Company Number: US-SA-2021SA175767

PATIENT
  Sex: Female

DRUGS (9)
  1. DUPIXENT [Suspect]
     Active Substance: DUPILUMAB
     Indication: DERMATITIS ATOPIC
     Dosage: UNK
     Route: 058
  2. PSYLLIUM [PLANTAGO PSYLLIUM] [Concomitant]
     Active Substance: HERBALS\PLANTAGO INDICA WHOLE
  3. BUSPIRONE [Concomitant]
     Active Substance: BUSPIRONE HYDROCHLORIDE
  4. SINGULAIR [Concomitant]
     Active Substance: MONTELUKAST SODIUM
  5. LEVOTHYROXINE. [Concomitant]
     Active Substance: LEVOTHYROXINE
  6. VITAMIN C [Concomitant]
     Active Substance: ASCORBIC ACID
  7. CLOBETASOL [Concomitant]
     Active Substance: CLOBETASOL
  8. SIMVASTATIN. [Concomitant]
     Active Substance: SIMVASTATIN
  9. TACROLIMUS. [Concomitant]
     Active Substance: TACROLIMUS

REACTIONS (1)
  - Sleep disorder [Unknown]
